FAERS Safety Report 6770681-6 (Version None)
Quarter: 2010Q2

REPORT INFORMATION
  Report Type: 
  Country: None (occurrence: None)
  Receive Date: 20100615
  Receipt Date: 20100607
  Transmission Date: 20101027
  Serious: Yes (Hospitalization, Other)
  Sender: FDA-Public Use
  Company Number: US-AMGEN-QUU372058

PATIENT
  Sex: Male

DRUGS (4)
  1. ENBREL [Suspect]
     Indication: RHEUMATOID ARTHRITIS
     Route: 058
     Dates: start: 20040101, end: 20040101
  2. REMICADE [Concomitant]
  3. ORENCIA [Concomitant]
  4. METHOTREXATE [Concomitant]
     Dates: end: 20090101

REACTIONS (19)
  - ARTHRITIS SALMONELLA [None]
  - ASTHENIA [None]
  - BALANCE DISORDER [None]
  - BONE GRAFT [None]
  - DENTAL IMPLANTATION [None]
  - DRUG INEFFECTIVE [None]
  - GAIT DISTURBANCE [None]
  - INNER EAR DISORDER [None]
  - JOINT SWELLING [None]
  - OEDEMA PERIPHERAL [None]
  - PROSTATOMEGALY [None]
  - PSEUDOMONAS INFECTION [None]
  - RENAL FAILURE [None]
  - RHEUMATOID ARTHRITIS [None]
  - RHEUMATOID NODULE [None]
  - TESTICULAR SWELLING [None]
  - THERAPEUTIC AGENT TOXICITY [None]
  - URINARY RETENTION [None]
  - URINARY TRACT INFECTION PSEUDOMONAL [None]
